FAERS Safety Report 14490066 (Version 1)
Quarter: 2018Q1

REPORT INFORMATION
  Report Type: Report from Study
  Country: None (occurrence: US)
  Receive Date: 20180206
  Receipt Date: 20180206
  Transmission Date: 20180509
  Serious: Yes (Hospitalization, Other)
  Sender: FDA-Public Use
  Company Number: US-ABBVIE-17S-163-2205488-00

PATIENT
  Age: 68 Year
  Sex: Male
  Weight: 104.42 kg

DRUGS (2)
  1. ANDROGEL [Suspect]
     Active Substance: TESTOSTERONE
     Indication: BLOOD TESTOSTERONE DECREASED
     Dosage: 1 PUMP EACH ARM DAILY
     Route: 062
     Dates: start: 201709
  2. ANDROGEL [Suspect]
     Active Substance: TESTOSTERONE
     Indication: ERECTILE DYSFUNCTION
     Dosage: 1 PUMP EACH ARM DAILY
     Route: 062

REACTIONS (4)
  - Trigger finger [Recovering/Resolving]
  - Osteomyelitis [Recovering/Resolving]
  - Adverse event [Unknown]
  - Nosocomial infection [Recovering/Resolving]

NARRATIVE: CASE EVENT DATE: 2017
